FAERS Safety Report 19513444 (Version 1)
Quarter: 2021Q3

REPORT INFORMATION
  Report Type: Spontaneous
  Country: BR (occurrence: BR)
  Receive Date: 20210709
  Receipt Date: 20210709
  Transmission Date: 20211014
  Serious: Yes (Other)
  Sender: FDA-Public Use
  Company Number: BR-TAKEDA-2021TUS040617

PATIENT
  Sex: Male
  Weight: 90 kg

DRUGS (1)
  1. DEXILANT [Suspect]
     Active Substance: DEXLANSOPRAZOLE
     Indication: GASTRITIS
     Dosage: 60 MILLIGRAM, QD
     Route: 065
     Dates: start: 20210615, end: 20210620

REACTIONS (13)
  - Blood pressure increased [Unknown]
  - Feeling abnormal [Unknown]
  - Malaise [Unknown]
  - Renal impairment [Unknown]
  - Urine output decreased [Unknown]
  - Unevaluable event [Unknown]
  - Abdominal pain [Unknown]
  - Toxicity to various agents [Unknown]
  - Condition aggravated [Unknown]
  - Back pain [Unknown]
  - Headache [Unknown]
  - Off label use [Unknown]
  - Abdominal distension [Unknown]
